FAERS Safety Report 15621194 (Version 9)
Quarter: 2022Q1

REPORT INFORMATION
  Report Type: Spontaneous
  Country: GB (occurrence: GB)
  Receive Date: 20181115
  Receipt Date: 20220124
  Transmission Date: 20220424
  Serious: Yes (Other)
  Sender: FDA-Public Use
  Company Number: PHHY2018GB153563

PATIENT
  Age: 54 Year
  Sex: Female

DRUGS (132)
  1. LETROZOLE [Suspect]
     Active Substance: LETROZOLE
     Indication: HER2 positive breast cancer
     Dosage: 2.5 MG, QD
     Route: 048
     Dates: start: 201507, end: 20170427
  2. LETROZOLE [Suspect]
     Active Substance: LETROZOLE
     Dosage: 2.5 MG, QD
     Route: 048
     Dates: start: 20170427
  3. TRASTUZUMAB [Suspect]
     Active Substance: TRASTUZUMAB
     Indication: HER2 positive breast cancer
     Dosage: 600 MG, QMO (LAST DOSE ON 22 DEC 2017)
     Route: 058
     Dates: start: 20150716, end: 20171222
  4. TRASTUZUMAB [Suspect]
     Active Substance: TRASTUZUMAB
     Indication: HER2 positive breast cancer
  5. EXEMESTANE [Suspect]
     Active Substance: EXEMESTANE
     Indication: HER2 positive breast cancer
     Dosage: 25 MG, QD
     Route: 048
     Dates: start: 20170428, end: 20180110
  6. ADO-TRASTUZUMAB EMTANSINE [Suspect]
     Active Substance: ADO-TRASTUZUMAB EMTANSINE
     Indication: HER2 positive breast cancer
     Dosage: 420 MG, Q4W
     Route: 042
     Dates: start: 20180118
  7. CLARITHROMYCIN [Concomitant]
     Active Substance: CLARITHROMYCIN
     Indication: Lower respiratory tract infection
     Dosage: 500 MG, QD
     Route: 048
     Dates: start: 20180701, end: 20180711
  8. CLARITHROMYCIN [Concomitant]
     Active Substance: CLARITHROMYCIN
     Indication: Pyrexia
     Dosage: 500 MG
     Route: 048
     Dates: start: 20190415
  9. CLARITHROMYCIN [Concomitant]
     Active Substance: CLARITHROMYCIN
     Indication: Pneumonia
     Dosage: UNK
     Route: 048
     Dates: start: 20191111, end: 20191118
  10. CLARITHROMYCIN [Concomitant]
     Active Substance: CLARITHROMYCIN
     Indication: Sepsis
     Dosage: 500 MG
     Route: 048
     Dates: start: 20191219, end: 20191221
  11. CLARITHROMYCIN [Concomitant]
     Active Substance: CLARITHROMYCIN
     Dosage: 500 MG
     Route: 042
     Dates: start: 20190611, end: 20190611
  12. CLARITHROMYCIN [Concomitant]
     Active Substance: CLARITHROMYCIN
     Dosage: 500 MG
     Route: 048
     Dates: start: 20200622, end: 20200628
  13. CLARITHROMYCIN [Concomitant]
     Active Substance: CLARITHROMYCIN
     Dosage: 500 MG
     Route: 048
     Dates: start: 20200728, end: 20200803
  14. CLARITHROMYCIN [Concomitant]
     Active Substance: CLARITHROMYCIN
     Dosage: 500 MG
     Route: 048
     Dates: start: 20191111, end: 20191118
  15. GABAPENTIN [Concomitant]
     Active Substance: GABAPENTIN
     Indication: Product used for unknown indication
     Dosage: 300 MG, TID
     Route: 048
     Dates: start: 20151231
  16. GABAPENTIN [Concomitant]
     Active Substance: GABAPENTIN
     Dosage: 1.2 G
     Route: 067
  17. GABAPENTIN [Concomitant]
     Active Substance: GABAPENTIN
     Route: 048
     Dates: start: 20151231
  18. GABAPENTIN [Concomitant]
     Active Substance: GABAPENTIN
     Dosage: 1.2 G
     Route: 048
  19. METRONIDAZOLE [Concomitant]
     Active Substance: METRONIDAZOLE
     Indication: Cellulitis
     Dosage: UNK
     Route: 048
     Dates: start: 20170701, end: 20170708
  20. METRONIDAZOLE [Concomitant]
     Active Substance: METRONIDAZOLE
     Indication: Osteomyelitis
     Dosage: 1600 MG
     Route: 048
     Dates: start: 20180915, end: 20180921
  21. METRONIDAZOLE [Concomitant]
     Active Substance: METRONIDAZOLE
     Indication: Osteomyelitis
     Dosage: 400 MG
     Route: 048
     Dates: start: 20180915, end: 20180921
  22. DEXAMETHASONE [Concomitant]
     Active Substance: DEXAMETHASONE
     Indication: Metastases to bone
     Dosage: REDUCING DOSE FROM HOSPITAL ADMISSION 8/OCT/2015- 10/OCT/2015
     Route: 048
     Dates: start: 20151008, end: 20151020
  23. DEXAMETHASONE [Concomitant]
     Active Substance: DEXAMETHASONE
     Dosage: 16 MG, QD (REDUCING DOSE FROM HOSPITAL ADMISSION 8/OCT/2015- 10/OCT/2015)
     Route: 048
     Dates: start: 20151008, end: 20151020
  24. DEXAMETHASONE [Concomitant]
     Active Substance: DEXAMETHASONE
     Dosage: 4 MG, UNK
     Route: 048
     Dates: start: 20151020, end: 20151103
  25. DEXAMETHASONE [Concomitant]
     Active Substance: DEXAMETHASONE
     Dosage: 8 MG, QD
     Route: 048
     Dates: start: 20151020, end: 20151103
  26. DEXAMETHASONE [Concomitant]
     Active Substance: DEXAMETHASONE
     Dosage: 8 MG, UNK
     Route: 048
     Dates: start: 20151104, end: 20151110
  27. DEXAMETHASONE [Concomitant]
     Active Substance: DEXAMETHASONE
     Dosage: 4 MG, UNK
     Route: 048
     Dates: start: 20151104, end: 20151110
  28. DEXAMETHASONE [Concomitant]
     Active Substance: DEXAMETHASONE
     Dosage: 4 MG (REDUCING WEEKLY DOSE)
     Route: 048
     Dates: start: 20151111, end: 20151117
  29. DEXAMETHASONE [Concomitant]
     Active Substance: DEXAMETHASONE
     Dosage: REDUCING WEEKLY DOSE
     Route: 048
     Dates: start: 20151111, end: 20151117
  30. DEXAMETHASONE [Concomitant]
     Active Substance: DEXAMETHASONE
     Dosage: 1 MG, UNK
     Route: 048
     Dates: start: 20151118, end: 20151124
  31. DEXAMETHASONE [Concomitant]
     Active Substance: DEXAMETHASONE
     Dosage: 2 MG, UNK
     Route: 048
     Dates: start: 20151118, end: 20151124
  32. DEXAMETHASONE [Concomitant]
     Active Substance: DEXAMETHASONE
     Dosage: 2 MG, QD
     Route: 048
     Dates: start: 20151125, end: 20151202
  33. DEXAMETHASONE [Concomitant]
     Active Substance: DEXAMETHASONE
     Dosage: 1 MG, UNK
     Route: 048
     Dates: start: 20151125, end: 20151202
  34. DENOSUMAB [Concomitant]
     Active Substance: DENOSUMAB
     Indication: Metastases to bone
     Dosage: 120 MG, Q4W
     Route: 058
     Dates: start: 20170604, end: 20170613
  35. DENOSUMAB [Concomitant]
     Active Substance: DENOSUMAB
     Indication: Metastases to bone
     Dosage: TREATMENT OF BONE METASTASES
     Route: 058
     Dates: start: 20180118
  36. CYCLIZINE [Concomitant]
     Active Substance: CYCLIZINE
     Indication: Product used for unknown indication
     Dosage: 150 MG, QD
     Route: 048
     Dates: start: 201507
  37. CYCLIZINE [Concomitant]
     Active Substance: CYCLIZINE
     Dosage: 50 MG
     Route: 048
     Dates: start: 201507
  38. PENICILLIN G [Concomitant]
     Active Substance: PENICILLIN G
     Indication: Cellulitis
     Dosage: 4.8 G, QD
     Route: 042
     Dates: start: 20180912, end: 20180915
  39. PENICILLIN G [Concomitant]
     Active Substance: PENICILLIN G
     Indication: Pyrexia
     Dosage: UNK
     Route: 065
  40. PENICILLIN G [Concomitant]
     Active Substance: PENICILLIN G
     Dosage: 1.2 G
     Route: 042
     Dates: start: 20180912, end: 20180915
  41. MEROPENEM [Concomitant]
     Active Substance: MEROPENEM
     Indication: Pyrexia
     Dosage: 3 G, QD
     Route: 042
     Dates: start: 20180813, end: 20180814
  42. MEROPENEM [Concomitant]
     Active Substance: MEROPENEM
     Indication: Pneumonia
     Dosage: 3 G, QD
     Route: 042
     Dates: start: 20181222, end: 20181227
  43. MEROPENEM [Concomitant]
     Active Substance: MEROPENEM
     Indication: Sepsis
     Dosage: 1 G, UNK
     Route: 042
     Dates: start: 20180813, end: 20180814
  44. MEROPENEM [Concomitant]
     Active Substance: MEROPENEM
     Dosage: 1 G, UNK
     Route: 042
     Dates: start: 20181222, end: 20181227
  45. MEROPENEM [Concomitant]
     Active Substance: MEROPENEM
     Dosage: 1 G
     Route: 042
     Dates: start: 20190205, end: 20190205
  46. MEROPENEM [Concomitant]
     Active Substance: MEROPENEM
     Dosage: 1 G
     Route: 042
     Dates: start: 20190610, end: 20190617
  47. MEROPENEM [Concomitant]
     Active Substance: MEROPENEM
     Dosage: 1 G (ONE OFF DOSE)
     Route: 042
     Dates: start: 20200728, end: 20200728
  48. MEROPENEM [Concomitant]
     Active Substance: MEROPENEM
     Dosage: 1 G
     Route: 042
     Dates: start: 20200622, end: 20200622
  49. MORPHINE SULFATE [Concomitant]
     Active Substance: MORPHINE SULFATE
     Indication: Metastases to bone
     Dosage: 60 MG, QD
     Route: 048
     Dates: start: 201611
  50. MORPHINE SULFATE [Concomitant]
     Active Substance: MORPHINE SULFATE
     Dosage: 30 MG
     Route: 048
     Dates: start: 201611
  51. ZOMETA [Concomitant]
     Active Substance: ZOLEDRONIC ACID
     Indication: Product used for unknown indication
     Dosage: TREATMENT OF BONE DISEASE
     Route: 042
     Dates: start: 20150827, end: 20160314
  52. AMOXICILLIN [Concomitant]
     Active Substance: AMOXICILLIN
     Indication: Osteomyelitis
     Dosage: UNK
     Route: 048
     Dates: start: 20170701, end: 20170706
  53. AMOXICILLIN [Concomitant]
     Active Substance: AMOXICILLIN
     Indication: Lower respiratory tract infection
     Dosage: 1000 MG
     Route: 048
     Dates: start: 20180701, end: 20180711
  54. AMOXICILLIN [Concomitant]
     Active Substance: AMOXICILLIN
     Indication: Pneumonia
     Dosage: 500 MG
     Route: 048
     Dates: start: 20180701, end: 20180711
  55. AMOXICILLIN [Concomitant]
     Active Substance: AMOXICILLIN
     Indication: Pyrexia
     Dosage: 3000 MG, QD
     Route: 048
     Dates: start: 20180701, end: 20180711
  56. AMOXICILLIN [Concomitant]
     Active Substance: AMOXICILLIN
     Indication: Osteomyelitis
     Dosage: 1 G
     Route: 048
     Dates: start: 20191219, end: 20191221
  57. AMOXICILLIN [Concomitant]
     Active Substance: AMOXICILLIN
     Indication: Lower respiratory tract infection
     Dosage: 500 MG
     Route: 048
     Dates: start: 20190414
  58. AMOXICILLIN [Concomitant]
     Active Substance: AMOXICILLIN
     Dosage: 1 G
     Route: 048
     Dates: start: 20191115, end: 20191118
  59. AMOXICILLIN [Concomitant]
     Active Substance: AMOXICILLIN
     Dosage: UNK
     Route: 042
     Dates: start: 20191111, end: 20191115
  60. AMOXICILLIN [Concomitant]
     Active Substance: AMOXICILLIN
     Dosage: 1 G
     Route: 042
     Dates: start: 20191218, end: 20191219
  61. AMOXICILLIN [Concomitant]
     Active Substance: AMOXICILLIN
     Dosage: 1 G
     Route: 042
     Dates: start: 20200622, end: 20200626
  62. AMOXICILLIN [Concomitant]
     Active Substance: AMOXICILLIN
     Dosage: 1 G
     Route: 048
     Dates: start: 20200626, end: 20200628
  63. AMOXICILLIN [Concomitant]
     Active Substance: AMOXICILLIN
     Dosage: 1 G
     Route: 042
     Dates: start: 20191111, end: 20191115
  64. VITAMIN D3 [Concomitant]
     Active Substance: CHOLECALCIFEROL
     Indication: Product used for unknown indication
     Dosage: BONE DISEASE
     Route: 048
     Dates: start: 20150827
  65. LISINOPRIL [Concomitant]
     Active Substance: LISINOPRIL
     Indication: Ejection fraction decreased
     Dosage: 7.5 MG, QD
     Route: 048
     Dates: start: 20161110
  66. LISINOPRIL [Concomitant]
     Active Substance: LISINOPRIL
     Indication: Ejection fraction decreased
     Dosage: 2.5 MG (DROP OF LVEF TO 59 %)
     Route: 048
     Dates: start: 20161110
  67. CITALOPRAM [Concomitant]
     Active Substance: CITALOPRAM HYDROBROMIDE
     Indication: Product used for unknown indication
     Dosage: 40 MG, QD
     Route: 048
     Dates: start: 2005
  68. ACETAMINOPHEN [Concomitant]
     Active Substance: ACETAMINOPHEN
     Indication: Product used for unknown indication
     Dosage: 500 MG, PRN (AS NEEDED)
     Route: 048
     Dates: start: 201504
  69. DOXYCYCLINE [Concomitant]
     Active Substance: DOXYCYCLINE
     Indication: Lower respiratory tract infection
     Dosage: 200 MG, QD
     Route: 048
     Dates: start: 20180814, end: 20180814
  70. DOXYCYCLINE [Concomitant]
     Active Substance: DOXYCYCLINE
     Indication: Pyrexia
     Dosage: UNK
     Route: 048
     Dates: start: 20170112, end: 20170118
  71. DOXYCYCLINE [Concomitant]
     Active Substance: DOXYCYCLINE
     Indication: Cellulitis
     Dosage: 100 MG
     Route: 048
     Dates: start: 20180814, end: 20180814
  72. DOXYCYCLINE [Concomitant]
     Active Substance: DOXYCYCLINE
     Indication: Pneumonia
     Dosage: 100 MG
     Route: 048
     Dates: start: 20190929, end: 20191005
  73. DOXYCYCLINE [Concomitant]
     Active Substance: DOXYCYCLINE
     Dosage: UNK
     Route: 048
     Dates: start: 20180815
  74. DOXYCYCLINE [Concomitant]
     Active Substance: DOXYCYCLINE
     Dosage: UNK
     Route: 048
     Dates: start: 20190929, end: 20191005
  75. DOXYCYCLINE [Concomitant]
     Active Substance: DOXYCYCLINE
     Dosage: 100 MG, QD
     Route: 048
     Dates: start: 20170112, end: 20170118
  76. DOXYCYCLINE [Concomitant]
     Active Substance: DOXYCYCLINE
     Dosage: UNK
     Route: 048
     Dates: start: 20191223, end: 20191230
  77. DOXYCYCLINE [Concomitant]
     Active Substance: DOXYCYCLINE
     Dosage: 100 MG, QD
     Route: 048
     Dates: start: 20200728, end: 20200728
  78. DOXYCYCLINE [Concomitant]
     Active Substance: DOXYCYCLINE
     Dosage: 100 MG
     Route: 048
     Dates: start: 20180815
  79. DOXYCYCLINE [Concomitant]
     Active Substance: DOXYCYCLINE
     Dosage: 200 MG
     Route: 048
     Dates: start: 20191223, end: 20191230
  80. CODEINE [Concomitant]
     Active Substance: CODEINE
     Indication: Product used for unknown indication
     Dosage: AS NEEDED
     Route: 048
     Dates: start: 201504
  81. LANSOPRAZOLE [Concomitant]
     Active Substance: LANSOPRAZOLE
     Indication: Product used for unknown indication
     Dosage: 15 MG, QD (REFLUX)
     Route: 048
     Dates: start: 2001
  82. LANSOPRAZOLE [Concomitant]
     Active Substance: LANSOPRAZOLE
     Dosage: REFLUX
     Route: 048
  83. PROMETHAZINE HYDROCHLORIDE [Concomitant]
     Active Substance: PROMETHAZINE HYDROCHLORIDE
     Indication: Product used for unknown indication
     Dosage: UNK
     Route: 048
  84. PROMETHAZINE HYDROCHLORIDE [Concomitant]
     Active Substance: PROMETHAZINE HYDROCHLORIDE
     Dosage: UNK
     Route: 048
  85. PROMETHAZINE HYDROCHLORIDE [Concomitant]
     Active Substance: PROMETHAZINE HYDROCHLORIDE
     Dosage: UNK
     Route: 048
  86. PROMETHAZINE HYDROCHLORIDE [Concomitant]
     Active Substance: PROMETHAZINE HYDROCHLORIDE
     Dosage: UNK
     Route: 048
  87. PROMETHAZINE HYDROCHLORIDE [Concomitant]
     Active Substance: PROMETHAZINE HYDROCHLORIDE
     Dosage: 50 MG, QD
     Route: 048
  88. PROMETHAZINE HYDROCHLORIDE [Concomitant]
     Active Substance: PROMETHAZINE HYDROCHLORIDE
     Dosage: 25 MG, QD
     Route: 048
  89. BUTYLSCOPOLAMINE BROMIDE [Concomitant]
     Active Substance: BUTYLSCOPOLAMINE BROMIDE
     Indication: Nausea
     Dosage: 30 MG, QD
     Route: 048
     Dates: start: 20181222
  90. BUTYLSCOPOLAMINE BROMIDE [Concomitant]
     Active Substance: BUTYLSCOPOLAMINE BROMIDE
     Dosage: 10 MG
     Route: 048
     Dates: start: 20181222
  91. TEICOPLANIN [Concomitant]
     Active Substance: TEICOPLANIN
     Indication: Pyrexia
     Dosage: 600 MG, UNK
     Route: 042
     Dates: start: 20181019, end: 20181025
  92. TEICOPLANIN [Concomitant]
     Active Substance: TEICOPLANIN
     Indication: Cellulitis
     Dosage: UNK
     Route: 042
     Dates: start: 20200728, end: 20200803
  93. TEICOPLANIN [Concomitant]
     Active Substance: TEICOPLANIN
     Dosage: 800 MG
     Route: 042
     Dates: start: 20200728, end: 20200803
  94. LINEZOLID [Concomitant]
     Active Substance: LINEZOLID
     Indication: Pyrexia
     Dosage: 1200 MG, QD
     Route: 048
     Dates: start: 20181223, end: 20181227
  95. LINEZOLID [Concomitant]
     Active Substance: LINEZOLID
     Indication: Cellulitis
     Dosage: 600 MG, UNK
     Route: 048
     Dates: start: 20181223, end: 20181227
  96. LINEZOLID [Concomitant]
     Active Substance: LINEZOLID
     Dosage: 600 MG
     Route: 042
     Dates: start: 20200206, end: 20200212
  97. LINEZOLID [Concomitant]
     Active Substance: LINEZOLID
     Dosage: STAPHYLOCOCCUSAURES SHOWN ONSKIN/SUPERFISCIALWOUND SWAB A
     Route: 042
     Dates: start: 20190611, end: 20190621
  98. AMOXICILLIN\CLAVULANATE POTASSIUM [Concomitant]
     Active Substance: AMOXICILLIN\CLAVULANATE POTASSIUM
     Indication: Cellulitis
     Dosage: 635 MG
     Route: 048
     Dates: start: 20190205, end: 20190206
  99. AMOXICILLIN\CLAVULANATE POTASSIUM [Concomitant]
     Active Substance: AMOXICILLIN\CLAVULANATE POTASSIUM
     Indication: Pyrexia
     Dosage: UNK
     Route: 048
     Dates: start: 20190322
  100. AMOXICILLIN\CLAVULANATE POTASSIUM [Concomitant]
     Active Substance: AMOXICILLIN\CLAVULANATE POTASSIUM
     Dosage: 625 MG
     Route: 048
     Dates: start: 20190205, end: 20190206
  101. PIPERACILLIN SODIUM\TAZOBACTAM SODIUM [Concomitant]
     Active Substance: PIPERACILLIN SODIUM\TAZOBACTAM SODIUM
     Indication: Pneumonia
     Dosage: 4.5 MG
     Route: 042
     Dates: start: 20191221, end: 20191227
  102. PIPERACILLIN SODIUM\TAZOBACTAM SODIUM [Concomitant]
     Active Substance: PIPERACILLIN SODIUM\TAZOBACTAM SODIUM
     Indication: Cellulitis
     Dosage: 4.5 G
     Route: 042
     Dates: start: 20200202, end: 20200206
  103. COTRIMOXAZOLE [Concomitant]
     Active Substance: SULFAMETHOXAZOLE\TRIMETHOPRIM
     Indication: Pneumonia
     Dosage: 960 MG
     Route: 048
     Dates: start: 20190206, end: 20190211
  104. COTRIMOXAZOLE [Concomitant]
     Active Substance: SULFAMETHOXAZOLE\TRIMETHOPRIM
     Indication: Pyrexia
     Dosage: 960 MG
     Route: 042
     Dates: start: 20190611, end: 20190611
  105. COTRIMOXAZOLE [Concomitant]
     Active Substance: SULFAMETHOXAZOLE\TRIMETHOPRIM
     Indication: Sepsis
     Dosage: 960 MG
     Route: 048
     Dates: start: 20200728, end: 20200803
  106. COTRIMOXAZOLE [Concomitant]
     Active Substance: SULFAMETHOXAZOLE\TRIMETHOPRIM
     Indication: Abdominal abscess
     Dosage: UNK
     Route: 042
     Dates: start: 20190611, end: 20190611
  107. COTRIMOXAZOLE [Concomitant]
     Active Substance: SULFAMETHOXAZOLE\TRIMETHOPRIM
     Dosage: 80/400, 1 TABLET
     Route: 048
     Dates: start: 20181015, end: 20181022
  108. CLINDAMYCIN [Concomitant]
     Active Substance: CLINDAMYCIN
     Indication: Cellulitis
     Dosage: STAPHYLOCOCCUSAURES SHOWN ONSKIN/SUPERFISCIALWOUND SWAB A
     Route: 042
     Dates: start: 20190611, end: 20190621
  109. CLINDAMYCIN [Concomitant]
     Active Substance: CLINDAMYCIN
     Dosage: 1.2 G
     Route: 042
     Dates: start: 20200206, end: 20200212
  110. NAPROXEN [Concomitant]
     Active Substance: NAPROXEN
     Indication: Product used for unknown indication
     Dosage: UNKNOWNEXACTINDICATION
     Route: 048
  111. ZANAMIVIR [Concomitant]
     Active Substance: ZANAMIVIR
     Indication: Pyrexia
     Dosage: INHALANT
     Route: 065
     Dates: start: 20191218, end: 20191219
  112. LOPERAMIDE [Concomitant]
     Active Substance: LOPERAMIDE
     Indication: Diarrhoea
     Dosage: UNK
     Route: 065
     Dates: start: 201804, end: 2019
  113. MAGNESIUM ASPARTATE [Concomitant]
     Active Substance: MAGNESIUM ASPARTATE
     Indication: Hypomagnesaemia
     Dosage: 6.5 G (POWDER FOR DILUTION)
     Route: 048
     Dates: start: 20191111
  114. ENOXAPARIN SODIUM [Concomitant]
     Active Substance: ENOXAPARIN SODIUM
     Indication: Thrombolysis
     Dosage: FOTR DVT PROHYLAXIS,
     Route: 058
     Dates: start: 20190610, end: 20190623
  115. ENOXAPARIN SODIUM [Concomitant]
     Active Substance: ENOXAPARIN SODIUM
     Dosage: THROMBOLYSISPROPHYLAXIS
     Route: 058
     Dates: start: 20200622, end: 20200623
  116. ENOXAPARIN SODIUM [Concomitant]
     Active Substance: ENOXAPARIN SODIUM
     Dosage: 40 MG, QD
     Route: 058
     Dates: start: 20200625, end: 20200625
  117. ENOXAPARIN SODIUM [Concomitant]
     Active Substance: ENOXAPARIN SODIUM
     Dosage: DVT PROPHYLAXIS
     Route: 058
     Dates: start: 20200728, end: 20200805
  118. TINZAPARIN [Concomitant]
     Active Substance: TINZAPARIN
     Indication: Deep vein thrombosis
     Dosage: 20000 U
     Route: 058
     Dates: start: 20190928
  119. TINZAPARIN [Concomitant]
     Active Substance: TINZAPARIN
     Dosage: POSSSIBLE DVTTREATMENT
     Route: 058
     Dates: start: 20200624, end: 20200624
  120. FLUCLOXACILLIN [Concomitant]
     Active Substance: FLUCLOXACILLIN
     Indication: Product used for unknown indication
     Dosage: PARONCHIA OF FINGER + TOE
     Route: 048
     Dates: start: 20180910, end: 20180912
  121. FLUCLOXACILLIN [Concomitant]
     Active Substance: FLUCLOXACILLIN
     Indication: Pyrexia
     Dosage: 500 MG
     Route: 048
     Dates: start: 20180912, end: 20180915
  122. FLUCLOXACILLIN [Concomitant]
     Active Substance: FLUCLOXACILLIN
     Indication: Cellulitis
     Dosage: 500 MG
     Route: 048
     Dates: start: 20180915, end: 20180921
  123. FLUCLOXACILLIN [Concomitant]
     Active Substance: FLUCLOXACILLIN
     Dosage: 1 G
     Route: 042
     Dates: start: 20020130, end: 20200202
  124. FLUCLOXACILLIN [Concomitant]
     Active Substance: FLUCLOXACILLIN
     Dosage: 1 G
     Route: 065
     Dates: start: 20180912, end: 20180915
  125. CIPROFLOXACIN [Concomitant]
     Active Substance: CIPROFLOXACIN
     Indication: Pyrexia
     Dosage: 750 MG
     Route: 048
     Dates: start: 20190205, end: 20190206
  126. LEVOTHYROXINE [Concomitant]
     Active Substance: LEVOTHYROXINE
     Indication: Hypothyroidism
     Dosage: 50 UG, QD
     Route: 048
     Dates: start: 20200311
  127. RIFAMPIN [Concomitant]
     Active Substance: RIFAMPIN
     Indication: Cellulitis
     Dosage: UNK
     Route: 065
     Dates: start: 20200212, end: 20200212
  128. RIFAMPIN [Concomitant]
     Active Substance: RIFAMPIN
     Dosage: 300 MG
     Route: 048
     Dates: start: 20200212, end: 20200212
  129. VANCOMYCIN [Concomitant]
     Active Substance: VANCOMYCIN
     Indication: Cellulitis
     Route: 042
     Dates: start: 20200201, end: 20200206
  130. PREDNISOLONE [Concomitant]
     Active Substance: PREDNISOLONE
     Indication: Pneumonia
     Dosage: 30 MG, QD
     Route: 048
     Dates: start: 20200625, end: 20200629
  131. DERMOL [Concomitant]
     Active Substance: BENZALKONIUM CHLORIDE\CHLORHEXIDINE HYDROCHLORIDE\ISOPROPYL MYRISTATE\PARAFFIN
     Indication: Product used for unknown indication
     Dosage: FOR SKIN
     Route: 061
  132. CALCIUM [Concomitant]
     Active Substance: CALCIUM
     Indication: Product used for unknown indication
     Dosage: BONE DISEASE
     Route: 048
     Dates: start: 20150727, end: 20180117

REACTIONS (11)
  - Anaemia [Not Recovered/Not Resolved]
  - Lymphoedema [Recovered/Resolved]
  - Anaemia [Recovered/Resolved]
  - Herpes zoster [Recovered/Resolved]
  - Oral herpes [Recovered/Resolved]
  - Musculoskeletal stiffness [Not Recovered/Not Resolved]
  - Humerus fracture [Recovered/Resolved]
  - Musculoskeletal stiffness [Not Recovered/Not Resolved]
  - Back pain [Recovered/Resolved]
  - Anaemia [Unknown]
  - Dyspepsia [Recovered/Resolved]

NARRATIVE: CASE EVENT DATE: 20151112
